FAERS Safety Report 12701625 (Version 2)
Quarter: 2016Q3

REPORT INFORMATION
  Report Type: Report from Study
  Country: DE (occurrence: DE)
  Receive Date: 20160831
  Receipt Date: 20160902
  Transmission Date: 20161109
  Serious: Yes (Hospitalization, Other)
  Sender: FDA-Public Use
  Company Number: DE-BRISTOL-MYERS SQUIBB COMPANY-BMS-2016-070187

PATIENT
  Sex: Female
  Weight: 61.9 kg

DRUGS (3)
  1. DACLATASVIR DIHYDROCHLORIDE [Suspect]
     Active Substance: DACLATASVIR DIHYDROCHLORIDE
     Indication: HEPATITIS C
     Dosage: 60 MG, QD
     Route: 065
     Dates: start: 20160602
  2. SOFOSBUVIR [Suspect]
     Active Substance: SOFOSBUVIR
     Indication: HEPATITIS C
     Dosage: 400 MG, QD
     Route: 065
     Dates: start: 20160602
  3. UNACID                             /00903602/ [Concomitant]
     Indication: URINARY TRACT INFECTION
     Dosage: 750 MG, UNK
     Route: 048
     Dates: start: 20160713, end: 20160720

REACTIONS (1)
  - Clostridium difficile colitis [Recovered/Resolved]
